FAERS Safety Report 11135684 (Version 5)
Quarter: 2016Q4

REPORT INFORMATION
  Report Type: Spontaneous
  Country: JP (occurrence: JP)
  Receive Date: 20150526
  Receipt Date: 20161229
  Transmission Date: 20170206
  Serious: Yes (Hospitalization, Other)
  Sender: FDA-Public Use
  Company Number: JP-PFIZER INC-2015176669

PATIENT
  Age: 68 Year
  Sex: Female
  Weight: 48 kg

DRUGS (9)
  1. PENTASA [Concomitant]
     Active Substance: MESALAMINE
     Indication: DIARRHOEA
     Dosage: 750 MG, 3X/DAY
     Route: 048
     Dates: start: 20120522, end: 20120701
  2. HANGESHASHINTO [Concomitant]
     Active Substance: HERBALS
     Indication: DIARRHOEA
     Dosage: 2.5 G, 3X/DAY
     Route: 048
     Dates: start: 20120412, end: 20120419
  3. RYOKEIJUTSUKANTO [Concomitant]
     Indication: DIZZINESS
     Dosage: 2.5 G, 3X/DAY
     Route: 048
     Dates: start: 20120419, end: 20120509
  4. KEIHITO [Concomitant]
     Indication: DIARRHOEA
     Dosage: 2.5 G, 3X/DAY
     Route: 048
     Dates: start: 20120412, end: 20120419
  5. LOPEMIN /00384302/ [Concomitant]
     Active Substance: LOPERAMIDE HYDROCHLORIDE
     Indication: DIARRHOEA
     Dosage: UNK UNK, ONCE DAILY
     Route: 048
     Dates: start: 20120412, end: 20120419
  6. LACB-R [Concomitant]
     Indication: DIARRHOEA
     Dosage: 1 G, 3X/DAY
     Route: 048
     Dates: start: 20120522, end: 20120701
  7. POLYFUL [Concomitant]
     Active Substance: CALCIUM POLYCARBOPHIL
     Indication: DIARRHOEA
     Dosage: 1.2 G, 3X/DAY
     Route: 048
     Dates: start: 20120427, end: 20120520
  8. NAUZELIN [Concomitant]
     Active Substance: DOMPERIDONE
     Indication: NAUSEA
     Dosage: UNK UNK, THRICE DAILY
     Route: 048
     Dates: start: 20120510, end: 20120517
  9. CELECOX [Suspect]
     Active Substance: CELECOXIB
     Indication: BACK PAIN
     Dosage: 100 MG, 2X/DAY
     Route: 048
     Dates: start: 201110, end: 20120411

REACTIONS (5)
  - Diarrhoea [Recovered/Resolved]
  - Pyrexia [Recovered/Resolved]
  - Nausea [Recovering/Resolving]
  - Colitis microscopic [Unknown]
  - Gastric ulcer [Recovered/Resolved]

NARRATIVE: CASE EVENT DATE: 201203
